FAERS Safety Report 13720572 (Version 1)
Quarter: 2017Q3

REPORT INFORMATION
  Report Type: Spontaneous
  Country: US (occurrence: US)
  Receive Date: 20170706
  Receipt Date: 20170706
  Transmission Date: 20171127
  Serious: Yes (Other)
  Sender: FDA-Public Use
  Company Number: US-ENDO PHARMACEUTICALS INC-2017-003757

PATIENT
  Age: 35 Year

DRUGS (1)
  1. RHEUMATREX [Suspect]
     Active Substance: METHOTREXATE SODIUM
     Indication: RHEUMATOID ARTHRITIS
     Dosage: 7.5-15 MG PER WEEK
     Route: 065

REACTIONS (2)
  - Chronic myelomonocytic leukaemia [Unknown]
  - Acute myeloid leukaemia [Recovering/Resolving]
